FAERS Safety Report 8333567-1 (Version None)
Quarter: 2012Q2

REPORT INFORMATION
  Report Type: 
  Country: None (occurrence: None)
  Receive Date: 20120503
  Receipt Date: 20120425
  Transmission Date: 20120825
  Serious: Yes (Other)
  Sender: FDA-Public Use
  Company Number: PHHY2012BR037177

PATIENT
  Sex: Female

DRUGS (3)
  1. EXFORGE [Suspect]
     Indication: HYPERTENSION
     Dosage: 320/5 MG ONE TABLET DAILY
     Route: 048
     Dates: end: 20090918
  2. DIOVAN [Suspect]
     Dosage: 80 MG,
  3. DIOVAN [Suspect]
     Indication: HYPERTENSION
     Dosage: 320 MG

REACTIONS (1)
  - CEREBROVASCULAR ACCIDENT [None]
